FAERS Safety Report 12121258 (Version 1)
Quarter: 2016Q1

REPORT INFORMATION
  Report Type: Spontaneous
  Country: US (occurrence: US)
  Receive Date: 20160226
  Receipt Date: 20160226
  Transmission Date: 20160526
  Serious: No
  Sender: FDA-Public Use
  Company Number: US-ALLERGAN-1423551US

PATIENT
  Age: 4 Decade
  Sex: Female

DRUGS (1)
  1. REFRESH OPTIVE [Suspect]
     Active Substance: CARBOXYMETHYLCELLULOSE SODIUM\GLYCERIN
     Indication: PRODUCT USED FOR UNKNOWN INDICATION
     Dosage: 2-3 DROPS, 3 - 4 TIMES PER DAY
     Route: 047

REACTIONS (3)
  - Incorrect dose administered [Unknown]
  - Eye irritation [Unknown]
  - Therapeutic response decreased [Unknown]
